FAERS Safety Report 17499876 (Version 7)
Quarter: 2022Q2

REPORT INFORMATION
  Report Type: Spontaneous
  Country: JP (occurrence: JP)
  Receive Date: 20200304
  Receipt Date: 20220407
  Transmission Date: 20220720
  Serious: Yes (Hospitalization, Other)
  Sender: FDA-Public Use
  Company Number: JP-BRISTOL-MYERS SQUIBB COMPANY-BMS-2020-018063

PATIENT
  Age: 39 Year
  Sex: Female

DRUGS (4)
  1. OPDIVO [Suspect]
     Active Substance: NIVOLUMAB
     Indication: Malignant melanoma
     Dosage: UNK
     Route: 041
     Dates: start: 201910
  2. OPDIVO [Suspect]
     Active Substance: NIVOLUMAB
     Dosage: 80 MILLIGRAM
     Route: 041
     Dates: start: 20200109, end: 20200130
  3. OPDIVO [Suspect]
     Active Substance: NIVOLUMAB
     Dosage: 240 MILLIGRAM
     Route: 041
     Dates: start: 20200423
  4. YERVOY [Suspect]
     Active Substance: IPILIMUMAB
     Indication: Malignant melanoma
     Dosage: 128 MILLIGRAM
     Route: 041
     Dates: start: 20200109, end: 20200130

REACTIONS (4)
  - Rash maculo-papular [Recovered/Resolved]
  - Pyrexia [Recovered/Resolved]
  - Aspartate aminotransferase increased [Recovered/Resolved]
  - Alanine aminotransferase increased [Recovered/Resolved]

NARRATIVE: CASE EVENT DATE: 20200212
